FAERS Safety Report 8926345 (Version 2)
Quarter: 2013Q2

REPORT INFORMATION
  Report Type: Spontaneous
  Country: JP (occurrence: JP)
  Receive Date: 20121127
  Receipt Date: 20130604
  Transmission Date: 20140414
  Serious: Yes (Death, Hospitalization)
  Sender: FDA-Public Use
  Company Number: JP-ASTELLAS-2012US011408

PATIENT
  Age: 71 Year
  Sex: Female
  Weight: 37 kg

DRUGS (36)
  1. TARCEVA [Suspect]
     Indication: LUNG ADENOCARCINOMA
     Dosage: 150 MG, UID/QD
     Route: 048
     Dates: start: 20120731, end: 20120823
  2. TARCEVA [Suspect]
     Dosage: 150 MG, UID/QD
     Route: 048
     Dates: start: 20120904, end: 20121002
  3. BAKTAR [Concomitant]
     Indication: PRODUCT USED FOR UNKNOWN INDICATION
     Dosage: 1 G, UID/QD
     Route: 048
     Dates: start: 20120731, end: 20120823
  4. BAKTAR [Concomitant]
     Dosage: 1 G, UID/QD
     Route: 048
     Dates: start: 20120903, end: 20121002
  5. DIGOSIN [Concomitant]
     Indication: PRODUCT USED FOR UNKNOWN INDICATION
     Dosage: 0.125 MG, UID/QD
     Route: 048
     Dates: start: 20120731, end: 20120823
  6. DIGOSIN [Concomitant]
     Dosage: 0.125 MG, UID/QD
     Route: 048
     Dates: start: 20120903, end: 20121002
  7. LENDORMIN [Concomitant]
     Indication: PRODUCT USED FOR UNKNOWN INDICATION
     Dosage: 0.25 MG, UID/QD
     Route: 048
     Dates: start: 20120731, end: 20120823
  8. LOPEMIN [Concomitant]
     Indication: PRODUCT USED FOR UNKNOWN INDICATION
     Dosage: 1 MG, UID/QD
     Route: 048
     Dates: start: 20120731, end: 20120823
  9. LOPEMIN [Concomitant]
     Dosage: 1 MG, UID/QD
     Route: 048
     Dates: start: 20120903, end: 20121002
  10. LAC-B [Concomitant]
     Indication: PRODUCT USED FOR UNKNOWN INDICATION
     Dosage: 3 G, UID/QD
     Route: 048
     Dates: start: 20120731, end: 20120823
  11. LAC-B [Concomitant]
     Dosage: 1 G, UID/QD
     Route: 048
     Dates: start: 20120903, end: 20121002
  12. POTASSIUM CHLORIDE [Concomitant]
     Indication: PRODUCT USED FOR UNKNOWN INDICATION
     Dosage: 3 G, UID/QD
     Route: 048
     Dates: start: 20120731, end: 20120823
  13. POTASSIUM CHLORIDE [Concomitant]
     Dosage: 20 MEQ, UID/QD
     Route: 048
     Dates: start: 20120903, end: 20121002
  14. TANNALBIN [Concomitant]
     Indication: PRODUCT USED FOR UNKNOWN INDICATION
     Dosage: 3 G, UID/QD
     Route: 048
     Dates: start: 20120731, end: 20120823
  15. ADSORBIN [Concomitant]
     Indication: PRODUCT USED FOR UNKNOWN INDICATION
     Dosage: 3 G, UID/QD
     Route: 065
     Dates: start: 20120731, end: 20120823
  16. DEXART [Concomitant]
     Indication: PRODUCT USED FOR UNKNOWN INDICATION
     Dosage: 6.6 MG, UID/QD
     Route: 065
     Dates: start: 20120731, end: 20120823
  17. GASTER [Concomitant]
     Indication: PRODUCT USED FOR UNKNOWN INDICATION
     Dosage: 40 MG, UID/QD
     Route: 048
     Dates: start: 20120731, end: 20120823
  18. GASTER [Concomitant]
     Dosage: 10 MG, UID/QD
     Route: 048
     Dates: start: 20120903, end: 20121002
  19. BFLUID [Concomitant]
     Indication: PRODUCT USED FOR UNKNOWN INDICATION
     Dosage: 500 ML, UID/QD
     Route: 065
     Dates: start: 20120731, end: 20120823
  20. SOLDEM 3A [Concomitant]
     Indication: PRODUCT USED FOR UNKNOWN INDICATION
     Dosage: 500 ML, UID/QD
     Route: 065
     Dates: start: 20120731, end: 20120823
  21. VITACIMIN [Concomitant]
     Indication: PRODUCT USED FOR UNKNOWN INDICATION
     Dosage: 500 MG, UID/QD
     Route: 065
     Dates: start: 20120731, end: 20120823
  22. VITACIMIN [Concomitant]
     Dosage: 500 MG, UID/QD
     Route: 065
     Dates: start: 20120903, end: 20121002
  23. PYDOXAL [Concomitant]
     Indication: PRODUCT USED FOR UNKNOWN INDICATION
     Dosage: 10 MG, UID/QD
     Route: 065
     Dates: start: 20120731, end: 20120823
  24. PYDOXAL [Concomitant]
     Dosage: 10 MG, UID/QD
     Route: 065
     Dates: start: 20120903, end: 20121002
  25. METABOLIN G [Concomitant]
     Indication: PRODUCT USED FOR UNKNOWN INDICATION
     Dosage: 20 MG, UID/QD
     Route: 065
     Dates: start: 20120731, end: 20120823
  26. METABOLIN G [Concomitant]
     Dosage: 20 MG, UID/QD
     Route: 065
     Dates: start: 20120903, end: 20121002
  27. METHYCOBAL [Concomitant]
     Indication: PRODUCT USED FOR UNKNOWN INDICATION
     Dosage: 500 UG, UID/QD
     Route: 065
     Dates: start: 20120731, end: 20120823
  28. METHYCOBAL [Concomitant]
     Dosage: 500 UG, UID/QD
     Route: 065
     Dates: start: 20120903, end: 20121002
  29. GLYCEOL                            /00744501/ [Concomitant]
     Indication: PRODUCT USED FOR UNKNOWN INDICATION
     Dosage: 400 ML, UID/QD
     Route: 041
     Dates: start: 20120731, end: 20120823
  30. HEPARIN SODIUM [Concomitant]
     Indication: PRODUCT USED FOR UNKNOWN INDICATION
     Dosage: 1 MU/10ML 1 V
     Route: 065
     Dates: start: 20120731, end: 20120823
  31. HEPARIN SODIUM [Concomitant]
     Dosage: 1 MU/10ML 1 V
     Route: 065
     Dates: start: 20120903, end: 20121002
  32. URSO                               /00465701/ [Concomitant]
     Indication: PRODUCT USED FOR UNKNOWN INDICATION
     Dosage: 300 MG, UID/QD
     Route: 048
     Dates: start: 20120903, end: 20121002
  33. BISOLVON [Concomitant]
     Indication: PRODUCT USED FOR UNKNOWN INDICATION
     Dosage: 12 MG, UID/QD
     Route: 048
     Dates: start: 20120903, end: 20121002
  34. CALONAL [Concomitant]
     Indication: PRODUCT USED FOR UNKNOWN INDICATION
     Dosage: 400 MG, UID/QD
     Route: 048
     Dates: start: 20120903, end: 20121002
  35. ISOBIDE                            /00586301/ [Concomitant]
     Indication: PRODUCT USED FOR UNKNOWN INDICATION
     Dosage: 90 ML, UID/QD
     Route: 048
     Dates: start: 20120903, end: 20121002
  36. SOLITA T                           /05663301/ [Concomitant]
     Indication: PRODUCT USED FOR UNKNOWN INDICATION
     Dosage: 1000 ML, UID/QD
     Route: 048
     Dates: start: 20120903, end: 20121002

REACTIONS (4)
  - Pneumomediastinum [Recovering/Resolving]
  - Pneumatosis intestinalis [Recovering/Resolving]
  - Gastrointestinal necrosis [Recovering/Resolving]
  - Malignant neoplasm progression [Fatal]
